FAERS Safety Report 17460249 (Version 4)
Quarter: 2020Q2

REPORT INFORMATION
  Report Type: Spontaneous
  Country: US (occurrence: US)
  Receive Date: 20200226
  Receipt Date: 20200617
  Transmission Date: 20200713
  Serious: No
  Sender: FDA-Public Use
  Company Number: US-PFIZER INC-2020082680

PATIENT
  Age: 63 Year

DRUGS (1)
  1. PREMPRO [Suspect]
     Active Substance: ESTROGENS, CONJUGATED\MEDROXYPROGESTERONE ACETATE
     Dosage: 1 DF, DAILY (STRENGTH: 0.3 MG-1)
     Route: 048

REACTIONS (2)
  - Hot flush [Unknown]
  - Product prescribing error [Unknown]
